FAERS Safety Report 5104587-5 (Version None)
Quarter: 2006Q3

REPORT INFORMATION
  Report Type: 
  Country: None (occurrence: None)
  Receive Date: 20060914
  Receipt Date: 20051102
  Transmission Date: 20061208
  Serious: No
  Sender: FDA-Public Use
  Company Number: US-BRISTOL-MYERS SQUIBB COMPANY-13164678

PATIENT
  Age: 52 Year
  Sex: Male
  Weight: 66 kg

DRUGS (8)
  1. BUSPIRONE HCL [Suspect]
  2. PAXIL [Concomitant]
  3. LEVOXYL [Concomitant]
  4. MULTI-VITAMIN [Concomitant]
  5. CALCIUM GLUCONATE [Concomitant]
  6. MAGNESIUM [Concomitant]
  7. CHILDREN ASPIRIN [Concomitant]
  8. GLUCOSAMINE SULFATE [Concomitant]

REACTIONS (5)
  - ANXIETY [None]
  - DIZZINESS [None]
  - HOT FLUSH [None]
  - IRRITABILITY [None]
  - URINE OUTPUT INCREASED [None]
